FAERS Safety Report 6771251-6 (Version None)
Quarter: 2010Q2

REPORT INFORMATION
  Report Type: 
  Country: None (occurrence: None)
  Receive Date: 20100616
  Receipt Date: 20100610
  Transmission Date: 20101027
  Serious: Yes (Hospitalization)
  Sender: FDA-Public Use
  Company Number: NL-ELI_LILLY_AND_COMPANY-NL201004007145

PATIENT
  Sex: Female

DRUGS (23)
  1. PEMETREXED [Suspect]
     Indication: NON-SMALL CELL LUNG CANCER
     Dosage: 500 MG/M2, DAYONE EVERY 21 DAYS
     Route: 042
     Dates: start: 20100311
  2. CETUXIMAB [Suspect]
     Indication: NON-SMALL CELL LUNG CANCER
     Dosage: 400 MG/M2, DAY 1 CYCLE 1
     Route: 042
     Dates: start: 20100311
  3. CETUXIMAB [Suspect]
     Dosage: 250 MG/M2, WEEKLY (1/W)
     Route: 042
     Dates: start: 20100101
  4. CISPLATIN [Suspect]
     Indication: NON-SMALL CELL LUNG CANCER
     Dosage: 75 MG/M2, DAY 1 EVERY 21 DAYS
     Route: 042
     Dates: start: 20100311
  5. ASASANTIN /00042901/ [Concomitant]
  6. COVERSYL /00790701/ [Concomitant]
     Dates: end: 20100419
  7. OXYCODONE HCL [Concomitant]
  8. OXYCONTIN [Concomitant]
     Dosage: UNK, AS NEEDED
  9. EPREX [Concomitant]
     Dates: start: 20100308
  10. MOVICOLON [Concomitant]
     Dates: end: 20100423
  11. METOCLOPRAMIDE [Concomitant]
     Dates: start: 20100309
  12. SIMVASTATIN [Concomitant]
  13. FUCITHALMIC [Concomitant]
  14. OMEPRAZOLE [Concomitant]
     Dates: start: 20100111
  15. ZOFRAN [Concomitant]
     Dosage: UNK, AS NEEDED
     Dates: start: 20100318
  16. ACETAMINOPHEN [Concomitant]
     Dates: start: 20100406
  17. DICLOFENAC SODIUM [Concomitant]
     Dates: start: 20100408, end: 20100426
  18. LASIX [Concomitant]
     Dates: start: 20100423, end: 20100424
  19. TAVEGIL [Concomitant]
     Dates: start: 20100422, end: 20100422
  20. APREPITANT [Concomitant]
     Dates: start: 20100422, end: 20100424
  21. KYTRIL [Concomitant]
     Dates: start: 20100422, end: 20100422
  22. POTASSIUM CHLORIDE [Concomitant]
     Dates: start: 20100422, end: 20100422
  23. MAGNESIUM CHLORIDE [Concomitant]
     Dates: start: 20100422, end: 20100422

REACTIONS (1)
  - RECTAL HAEMORRHAGE [None]
